FAERS Safety Report 9527499 (Version 1)
Quarter: 2013Q3

REPORT INFORMATION
  Report Type: Spontaneous
  Country: US (occurrence: None)
  Receive Date: 20130913
  Receipt Date: 20130913
  Transmission Date: 20140515
  Serious: No
  Sender: FDA-Public Use
  Company Number: None

PATIENT
  Age: 57 Year
  Sex: Male
  Weight: 108.86 kg

DRUGS (6)
  1. PRAVASTATIN [Suspect]
     Indication: BLOOD CHOLESTEROL INCREASED
     Route: 048
     Dates: start: 20130627
  2. PRAVASTATIN [Suspect]
     Indication: BLOOD TRIGLYCERIDES INCREASED
     Route: 048
     Dates: start: 20130627
  3. NIFEDICAL XL [Suspect]
     Indication: HYPERTENSION
     Dosage: 60 MG, 1 PILL, ONCE A DAY MORNING, BY MOUT, EVERYDAY ONCE A DAY
     Route: 048
     Dates: start: 20130627
  4. LISINOPRIL [Suspect]
  5. CLOPIDOGREL [Suspect]
  6. METOPROLOL TARTRATE [Concomitant]

REACTIONS (3)
  - Rash [None]
  - Skin exfoliation [None]
  - Skin fissures [None]
